FAERS Safety Report 7641704-7 (Version None)
Quarter: 2011Q3

REPORT INFORMATION
  Report Type: 
  Country: None (occurrence: None)
  Receive Date: 20110728
  Receipt Date: 20110504
  Transmission Date: 20111222
  Serious: Yes (Hospitalization)
  Sender: FDA-Public Use
  Company Number: GR-VIIV HEALTHCARE LIMITED-B0735611A

PATIENT

DRUGS (2)
  1. ANTIRETROVIRAL MEDICATIONS [Concomitant]
     Indication: HIV INFECTION
  2. MARAVIROC [Suspect]
     Indication: HIV INFECTION
     Route: 065

REACTIONS (3)
  - ABDOMINAL PAIN UPPER [None]
  - GASTROINTESTINAL DISORDER [None]
  - VOMITING [None]
